FAERS Safety Report 8824455 (Version 2)
Quarter: 2012Q4

REPORT INFORMATION
  Report Type: 
  Country: JP (occurrence: JP)
  Receive Date: 20121004
  Receipt Date: 20121204
  Transmission Date: 20130627
  Serious: Yes (Hospitalization, Other)
  Sender: FDA-Public Use
  Company Number: JP-ELI_LILLY_AND_COMPANY-JP201209006735

PATIENT
  Age: 75 Year
  Sex: Female

DRUGS (2)
  1. FORTEO [Suspect]
     Dosage: UNK
     Route: 058
     Dates: start: 20120626
  2. FORTEO [Suspect]
     Dosage: UNK
     Route: 058

REACTIONS (4)
  - Fall [Recovered/Resolved]
  - Spinal cord operation [Recovered/Resolved]
  - Off label use [Recovered/Resolved]
  - Genital haemorrhage [Unknown]
